FAERS Safety Report 11874175 (Version 2)
Quarter: 2016Q1

REPORT INFORMATION
  Report Type: Spontaneous
  Country: US (occurrence: US)
  Receive Date: 20151229
  Receipt Date: 20160127
  Transmission Date: 20160526
  Serious: Yes (Hospitalization)
  Sender: FDA-Public Use
  Company Number: US-BEH-2015057106

PATIENT
  Age: 65 Year
  Sex: Female
  Weight: 121 kg

DRUGS (28)
  1. CARDIZEM CD [Concomitant]
     Active Substance: DILTIAZEM HYDROCHLORIDE
  2. LASIX [Concomitant]
     Active Substance: FUROSEMIDE
  3. LMX [Concomitant]
     Active Substance: LIDOCAINE
  4. POTASSIUM CHLORIDE ER [Concomitant]
     Active Substance: POTASSIUM CHLORIDE
  5. BUDESONIDE. [Concomitant]
     Active Substance: BUDESONIDE
  6. CINNAMON. [Concomitant]
     Active Substance: CINNAMON
  7. ASPIRIN EC [Concomitant]
     Active Substance: ASPIRIN
  8. STOOL SOFTENER [Concomitant]
     Active Substance: DOCUSATE CALCIUM
  9. SASSAFRAS OIL [Concomitant]
  10. CALCIUM [Concomitant]
     Active Substance: CALCIUM
  11. ALEVE [Concomitant]
     Active Substance: NAPROXEN SODIUM
  12. TYLENOL EX-STR [Concomitant]
  13. DUONEB [Concomitant]
     Active Substance: ALBUTEROL SULFATE\IPRATROPIUM BROMIDE
  14. SINGULAIR [Concomitant]
     Active Substance: MONTELUKAST SODIUM
  15. COMPLETE MULTIVITAMIN [Concomitant]
     Active Substance: VITAMINS
  16. ZEMAIRA [Suspect]
     Active Substance: .ALPHA.1-PROTEINASE INHIBITOR HUMAN
     Indication: ALPHA-1 ANTI-TRYPSIN DEFICIENCY
     Route: 042
  17. ZEMAIRA [Suspect]
     Active Substance: .ALPHA.1-PROTEINASE INHIBITOR HUMAN
     Dates: start: 20070406
  18. HEPARIN [Concomitant]
     Active Substance: HEPARIN SODIUM
  19. VITAMIN D [Concomitant]
     Active Substance: CHOLECALCIFEROL
  20. DIPHENHYDRAMINE. [Concomitant]
     Active Substance: DIPHENHYDRAMINE
  21. SODIUM CHLORIDE. [Concomitant]
     Active Substance: SODIUM CHLORIDE
  22. PREDNISONE. [Concomitant]
     Active Substance: PREDNISONE
  23. MELOXICAM. [Concomitant]
     Active Substance: MELOXICAM
  24. OXYGEN. [Concomitant]
     Active Substance: OXYGEN
  25. ZEMAIRA [Suspect]
     Active Substance: .ALPHA.1-PROTEINASE INHIBITOR HUMAN
     Indication: EMPHYSEMA
     Route: 042
  26. EPIPEN [Concomitant]
     Active Substance: EPINEPHRINE
  27. ZOCOR [Concomitant]
     Active Substance: SIMVASTATIN
  28. PERFOROMIST [Concomitant]
     Active Substance: FORMOTEROL FUMARATE DIHYDRATE

REACTIONS (2)
  - Lung infection [Unknown]
  - Cardiac disorder [Unknown]

NARRATIVE: CASE EVENT DATE: 20151218
